FAERS Safety Report 7942705-1 (Version None)
Quarter: 2011Q4

REPORT INFORMATION
  Report Type: 
  Country: None (occurrence: None)
  Receive Date: 20111122
  Receipt Date: 20110705
  Transmission Date: 20120403
  Serious: Yes (Other)
  Sender: FDA-Public Use
  Company Number: PHHY2011US52015

PATIENT
  Age: 26 Year
  Sex: Female
  Weight: 90.7194 kg

DRUGS (2)
  1. GILENYA [Suspect]
     Indication: MULTIPLE SCLEROSIS
     Dosage: 0.5 MG,  , DAILY, ORAL
     Route: 048
     Dates: start: 20101201, end: 20110601
  2. FIORICET [Concomitant]

REACTIONS (3)
  - LEUKOPENIA [None]
  - CD8 LYMPHOCYTES DECREASED [None]
  - CD4 LYMPHOCYTES DECREASED [None]
